FAERS Safety Report 8593862-8 (Version None)
Quarter: 2012Q3

REPORT INFORMATION
  Report Type: 
  Country: None (occurrence: None)
  Receive Date: 20120814
  Receipt Date: 20120808
  Transmission Date: 20120928
  Serious: Yes (Disabling)
  Sender: FDA-Public Use
  Company Number: FR-UCBSA-063378

PATIENT
  Age: 41 Year
  Sex: Male

DRUGS (14)
  1. NEORAL [Suspect]
     Indication: LUNG TRANSPLANT
     Dosage: ON 01-OCT-2007: 352 MG IN MORNING, 310 MG IN EVENING
     Route: 048
     Dates: start: 20070701, end: 20071002
  2. CREON [Suspect]
     Indication: PANCREATIC INSUFFICIENCY
     Dosage: 5 UNITS DAILY
     Route: 048
     Dates: start: 20070925
  3. ZOLPIDEM TARTRATE [Concomitant]
     Indication: INSOMNIA
     Dosage: 1 UNIT DAILY
  4. PAROXETINE HCL [Concomitant]
     Indication: DEPRESSION
     Dosage: 1 UNIT DAILY
  5. ATARAX [Concomitant]
     Indication: ANXIETY
     Dosage: 1 UNIT DAILY
  6. MYCOPHENOLATE MOFETIL [Concomitant]
     Dates: end: 20070921
  7. NEXIUM [Suspect]
     Indication: PROPHYLAXIS AGAINST GASTROINTESTINAL ULCER
     Dosage: DAILY DOSE: 40 MG
     Route: 048
     Dates: start: 20070925
  8. MOVIPREP [Suspect]
     Indication: CONSTIPATION
     Dosage: 3 UNITS DAILY, AS NECESSARY
     Route: 048
     Dates: start: 20070925
  9. VALGANCICLOVIR [Suspect]
     Dosage: 2 UNITS DAILY
     Route: 048
     Dates: start: 20070924, end: 20071105
  10. OXACILLIN [Suspect]
     Indication: STAPHYLOCOCCAL INFECTION
     Dosage: DAILY DOSE: 3 GRAMS
     Route: 048
     Dates: start: 20070919, end: 20071107
  11. PREDNISOLONE [Suspect]
     Indication: LUNG TRANSPLANT
     Dosage: DAILY DOSE: 20 MG
     Route: 048
     Dates: start: 20070924
  12. LOVENOX [Suspect]
     Dosage: DAILY DOSE: 0.2 ML
     Route: 058
     Dates: start: 20070925
  13. KEPPRA [Suspect]
     Indication: CONVULSION
     Dosage: DAILY DOSE: 2 UNITS
     Route: 048
     Dates: start: 20070730
  14. COLIMYCINE [Suspect]
     Indication: CYSTIC FIBROSIS
     Dosage: 2 UNITS DAILY
     Route: 055
     Dates: start: 20070925

REACTIONS (1)
  - OPTIC ISCHAEMIC NEUROPATHY [None]
